FAERS Safety Report 6193836-0 (Version None)
Quarter: 2009Q2

REPORT INFORMATION
  Report Type: 
  Country: None (occurrence: None)
  Receive Date: 20090518
  Receipt Date: 20090508
  Transmission Date: 20091009
  Serious: Yes (Hospitalization, Other)
  Sender: FDA-Public Use
  Company Number: US-ABBOTT-09P-163-0572306-00

PATIENT
  Sex: Female
  Weight: 140.29 kg

DRUGS (15)
  1. HUMIRA [Suspect]
     Indication: RHEUMATOID ARTHRITIS
     Route: 058
     Dates: start: 20051101, end: 20090430
  2. HUMIRA [Suspect]
     Dosage: PEN (LOT NUMBER IS FOR PEN)
     Route: 058
     Dates: start: 20090430
  3. NEXIUM [Concomitant]
     Indication: GASTRIC DISORDER
  4. ATACAND [Concomitant]
     Indication: HYPERTENSION
  5. TOPROL-XL [Concomitant]
     Indication: HYPERTENSION
  6. ALLOPURINOL [Concomitant]
     Indication: GOUT
  7. METHOTREXATE [Concomitant]
     Indication: RHEUMATOID ARTHRITIS
  8. FOLIC ACID [Concomitant]
     Indication: RHEUMATOID ARTHRITIS
  9. MAGNESIUM 64 [Concomitant]
     Indication: ELECTROLYTE SUBSTITUTION THERAPY
  10. UNKNOWN HORMONE REPLACEMENT [Concomitant]
     Indication: HORMONE REPLACEMENT THERAPY
  11. ASPIRIN [Concomitant]
     Indication: DRUG USE FOR UNKNOWN INDICATION
  12. INSULIN [Concomitant]
     Indication: DIABETES MELLITUS
  13. VYTORIN [Concomitant]
     Indication: BLOOD CHOLESTEROL INCREASED
  14. FERROUS SULFATE TAB [Concomitant]
     Indication: ANAEMIA
  15. TRAVATAN [Concomitant]
     Indication: GLAUCOMA

REACTIONS (5)
  - CELLULITIS [None]
  - DIARRHOEA [None]
  - GASTRIC DISORDER [None]
  - MALAISE [None]
  - OEDEMA PERIPHERAL [None]
